FAERS Safety Report 6856072-8 (Version None)
Quarter: 2010Q3

REPORT INFORMATION
  Report Type: 
  Country: None (occurrence: None)
  Receive Date: 20100719
  Receipt Date: 20100709
  Transmission Date: 20110219
  Serious: Yes (Other)
  Sender: FDA-Public Use
  Company Number: US-JNJFOC-20100703442

PATIENT
  Sex: Male
  Weight: 99.34 kg

DRUGS (7)
  1. SANDOZ FENTANYL TRANSDERMAL SYSTEM [Suspect]
     Indication: SPINAL FRACTURE
     Route: 062
  2. SANDOZ FENTANYL TRANSDERMAL SYSTEM [Suspect]
     Indication: HIP FRACTURE
     Route: 062
  3. SANDOZ FENTANYL TRANSDERMAL SYSTEM [Suspect]
     Route: 062
  4. SANDOZ FENTANYL TRANSDERMAL SYSTEM [Suspect]
     Route: 062
  5. BUSPAR [Concomitant]
     Indication: ANXIETY
     Route: 048
  6. SOMA [Concomitant]
     Indication: MUSCLE SPASMS
     Route: 048
  7. NORCO [Concomitant]
     Indication: PAIN
     Route: 048

REACTIONS (10)
  - APPLICATION SITE PAIN [None]
  - BURNING SENSATION [None]
  - DEPRESSION [None]
  - DIABETES MELLITUS [None]
  - HYPERTENSION [None]
  - MUSCLE SPASMS [None]
  - NERVE INJURY [None]
  - PAIN [None]
  - SLEEP DISORDER [None]
  - WRONG TECHNIQUE IN DRUG USAGE PROCESS [None]
